FAERS Safety Report 16705783 (Version 7)
Quarter: 2024Q3

REPORT INFORMATION
  Report Type: Spontaneous
  Country: IT (occurrence: IT)
  Receive Date: 20190815
  Receipt Date: 20240819
  Transmission Date: 20241017
  Serious: Yes (Hospitalization, Other)
  Sender: NOVARTIS
  Company Number: PHHY2019IT186073

PATIENT
  Age: 6 Year
  Sex: Male

DRUGS (2)
  1. CYCLOSPORINE [Suspect]
     Active Substance: CYCLOSPORINE
     Indication: Nephrotic syndrome
     Dosage: UNK
     Route: 065
  2. ALBUMIN HUMAN [Concomitant]
     Active Substance: ALBUMIN HUMAN
     Indication: Nephrotic syndrome
     Dosage: UNK
     Route: 065

REACTIONS (8)
  - Posterior reversible encephalopathy syndrome [Recovered/Resolved]
  - Hypertension [Recovered/Resolved]
  - Generalised tonic-clonic seizure [Recovered/Resolved]
  - Headache [Recovered/Resolved]
  - Vomiting [Recovered/Resolved]
  - Dizziness [Recovered/Resolved]
  - Blindness transient [Recovered/Resolved]
  - Loss of consciousness [Recovered/Resolved]
